FAERS Safety Report 7684917-0 (Version None)
Quarter: 2011Q3

REPORT INFORMATION
  Report Type: 
  Country: None (occurrence: None)
  Receive Date: 20110810
  Receipt Date: 20110727
  Transmission Date: 20111222
  Serious: Yes (Hospitalization)
  Sender: FDA-Public Use
  Company Number: GER/USA/11/0020593

PATIENT
  Age: 71 Year
  Sex: Female

DRUGS (1)
  1. AMLODIPINE [Suspect]
     Indication: DIABETIC NEPHROPATHY
     Dosage: 5 MG

REACTIONS (3)
  - BLOOD CREATININE INCREASED [None]
  - TOXIC EPIDERMAL NECROLYSIS [None]
  - BLOOD UREA INCREASED [None]
